FAERS Safety Report 8714005 (Version 2)
Quarter: 2012Q4

REPORT INFORMATION
  Report Type: 
  Country: DE (occurrence: DE)
  Receive Date: 20120808
  Receipt Date: 20121011
  Transmission Date: 20130627
  Serious: Yes (Death, Hospitalization, Other)
  Sender: FDA-Public Use
  Company Number: DE-ELI_LILLY_AND_COMPANY-DE201207008344

PATIENT
  Age: 50 Year
  Sex: Male

DRUGS (6)
  1. BYETTA [Suspect]
     Indication: TYPE 2 DIABETES MELLITUS
     Dosage: UNK, unknown
     Route: 058
     Dates: start: 201207, end: 20120820
  2. ATROVENT [Concomitant]
  3. SALBUTAMOL [Concomitant]
  4. RISPERIDON [Concomitant]
  5. TARGIN [Concomitant]
  6. ANTIBIOTICS [Concomitant]
     Dosage: UNK, prn

REACTIONS (3)
  - Death [Fatal]
  - Muscle spasms [Not Recovered/Not Resolved]
  - Epilepsy [Not Recovered/Not Resolved]
